FAERS Safety Report 5426350-8 (Version None)
Quarter: 2007Q3

REPORT INFORMATION
  Report Type: 
  Country: None (occurrence: None)
  Receive Date: 20070827
  Receipt Date: 20070823
  Transmission Date: 20080115
  Serious: Yes (Life-Threatening, Other)
  Sender: FDA-Public Use
  Company Number: CHWYE048318JUL07

PATIENT
  Age: 23 Year
  Sex: Female

DRUGS (2)
  1. TAZOBACTAM [Suspect]
     Indication: CYSTIC FIBROSIS
     Dosage: UNKNOWN
     Dates: start: 20061228, end: 20070101
  2. TAZOBACTAM [Suspect]
     Dosage: 2.5 G (FREQUENCY UNKNOWN)
     Dates: start: 20070628, end: 20070701

REACTIONS (6)
  - DYSPNOEA [None]
  - FATIGUE [None]
  - HYPERSENSITIVITY [None]
  - OXYGEN SATURATION DECREASED [None]
  - RASH GENERALISED [None]
  - RESPIRATORY ARREST [None]
